FAERS Safety Report 5337594-8 (Version None)
Quarter: 2007Q2

REPORT INFORMATION
  Report Type: 
  Country: None (occurrence: None)
  Receive Date: 20070524
  Receipt Date: 20070515
  Transmission Date: 20071010
  Serious: Yes (Hospitalization, Other)
  Sender: FDA-Public Use
  Company Number: 2007BI010628

PATIENT
  Age: 21 Year
  Sex: Female

DRUGS (2)
  1. AVONEX [Suspect]
     Indication: MULTIPLE SCLEROSIS
     Dosage: ; IM
     Route: 030
     Dates: start: 20050819, end: 20060816
  2. AVONEX [Suspect]
     Indication: MULTIPLE SCLEROSIS
     Dosage: ; IM
     Route: 030
     Dates: start: 20061211

REACTIONS (2)
  - SKIN REACTION [None]
  - SUICIDE ATTEMPT [None]
